FAERS Safety Report 7633746-2 (Version None)
Quarter: 2011Q3

REPORT INFORMATION
  Report Type: 
  Country: None (occurrence: None)
  Receive Date: 20110725
  Receipt Date: 20110704
  Transmission Date: 20111222
  Serious: No
  Sender: FDA-Public Use
  Company Number: US-B.I. PHARMACEUTICALS,INC./RIDGEFIELD-2011-BP-17026BP

PATIENT
  Age: 68 Year
  Sex: Female

DRUGS (9)
  1. ASCORBIC ACID [Concomitant]
     Indication: ROUTINE HEALTH MAINTENANCE
     Route: 048
  2. ZANTAC 75 [Suspect]
     Indication: GASTROOESOPHAGEAL REFLUX DISEASE
     Route: 048
     Dates: start: 20010101
  3. ZANTAC 150 [Suspect]
     Indication: GASTROOESOPHAGEAL REFLUX DISEASE
     Route: 048
  4. POTASSIUM [Concomitant]
     Indication: ROUTINE HEALTH MAINTENANCE
     Route: 048
  5. SYNTHROID [Concomitant]
     Indication: HYPOTHYROIDISM
     Dosage: 50 MG
     Route: 048
  6. CENTRUM SILVER [Concomitant]
     Indication: ROUTINE HEALTH MAINTENANCE
     Route: 048
  7. LORAZEPAM [Concomitant]
     Indication: PANIC ATTACK
     Route: 048
  8. ATENOLOL [Concomitant]
     Indication: PALPITATIONS
     Dosage: 16.6 MG
     Route: 048
  9. COQ10 [Concomitant]
     Indication: ROUTINE HEALTH MAINTENANCE
     Route: 048

REACTIONS (10)
  - DYSPNOEA [None]
  - OSTEOPOROSIS [None]
  - LARYNGEAL OEDEMA [None]
  - LARYNGITIS [None]
  - DRUG HYPERSENSITIVITY [None]
  - GASTROOESOPHAGEAL REFLUX DISEASE [None]
  - DYSGEUSIA [None]
  - REGURGITATION [None]
  - DRUG INEFFECTIVE [None]
  - ABDOMINAL DISTENSION [None]
